FAERS Safety Report 7813323-0 (Version None)
Quarter: 2011Q4

REPORT INFORMATION
  Report Type: 
  Country: None (occurrence: None)
  Receive Date: 20111013
  Receipt Date: 20111004
  Transmission Date: 20120403
  Serious: Yes (Other)
  Sender: FDA-Public Use
  Company Number: US-ASTRAZENECA-2011SE59740

PATIENT
  Age: 66 Year
  Sex: Female

DRUGS (4)
  1. NEXIUM [Suspect]
     Route: 048
  2. TAGAMET [Concomitant]
  3. ZANTAC [Concomitant]
  4. PRILOSEC [Suspect]
     Route: 048

REACTIONS (3)
  - MYOCARDIAL INFARCTION [None]
  - HYPERTENSION [None]
  - DIABETES MELLITUS [None]
